FAERS Safety Report 26144151 (Version 1)
Quarter: 2025Q4

REPORT INFORMATION
  Report Type: Spontaneous
  Country: US (occurrence: US)
  Receive Date: 20251211
  Receipt Date: 20251211
  Transmission Date: 20260117
  Serious: Yes (Hospitalization, Other)
  Sender: RANBAXY
  Company Number: US-SUN PHARMACEUTICAL INDUSTRIES INC-2025R1-540580

PATIENT
  Age: 42 Year
  Sex: Male

DRUGS (1)
  1. CLOZAPINE [Suspect]
     Active Substance: CLOZAPINE
     Indication: Schizoaffective disorder bipolar type
     Dosage: UNK (NIGHTLY)
     Route: 065

REACTIONS (10)
  - Product dose omission issue [Unknown]
  - Hallucination [Recovering/Resolving]
  - Paranoia [Recovering/Resolving]
  - Agitation [Recovering/Resolving]
  - Intentional self-injury [Unknown]
  - Nausea [Recovering/Resolving]
  - Vomiting [Recovering/Resolving]
  - Hyperhidrosis [Recovering/Resolving]
  - Cholinergic rebound syndrome [Recovering/Resolving]
  - Serotonin syndrome [Recovering/Resolving]
